FAERS Safety Report 6103575-X (Version None)
Quarter: 2009Q1

REPORT INFORMATION
  Report Type: 
  Country: None (occurrence: None)
  Receive Date: 20090302
  Receipt Date: 20090209
  Transmission Date: 20090719
  Serious: No
  Sender: FDA-Public Use
  Company Number: 20096276

PATIENT
  Age: 41 Year
  Sex: Male

DRUGS (1)
  1. LIORESAL [Suspect]
     Indication: MUSCLE SPASTICITY
     Dosage: 180 MCG DAILY INTRATHECAL
     Route: 037

REACTIONS (3)
  - DRUG DOSE OMISSION [None]
  - MUSCLE SPASTICITY [None]
  - PRIAPISM [None]
